FAERS Safety Report 11225699 (Version 2)
Quarter: 2016Q3

REPORT INFORMATION
  Report Type: Spontaneous
  Country: DK (occurrence: DK)
  Receive Date: 20150629
  Receipt Date: 20160801
  Transmission Date: 20161109
  Serious: Yes (Hospitalization)
  Sender: FDA-Public Use
  Company Number: DK-PFIZER INC-2015210425

PATIENT
  Age: 83 Year
  Sex: Male

DRUGS (5)
  1. EUTHYROX [Concomitant]
     Active Substance: LEVOTHYROXINE SODIUM
     Indication: HYPOTHYROIDISM
     Dosage: 25 UG, 1X/DAY
  2. METOPROLOLSUCCINAT HEXAL [Concomitant]
     Active Substance: METOPROLOL SUCCINATE
     Indication: ARRHYTHMIA
     Dosage: 25 MG, 1X/DAY
     Dates: start: 20140610
  3. PINEX [Concomitant]
     Active Substance: ACETAMINOPHEN
     Indication: PAIN
     Dosage: 1000 MG, AS NEEDED MAX 4 TIMES DAILY
     Dates: start: 20140512
  4. HJERTEMAGNYL /00228701/ [Concomitant]
     Active Substance: ASPIRIN\MAGNESIUM OXIDE
     Indication: PROPHYLAXIS
     Dosage: 75 MG, 1X/DAY
     Dates: start: 20140512
  5. ATORVASTATIN PFIZER [Suspect]
     Active Substance: ATORVASTATIN
     Indication: HYPERCHOLESTEROLAEMIA
     Dosage: 80 MG, 1X/DAY
     Route: 048
     Dates: start: 20140514, end: 20150529

REACTIONS (2)
  - Infection [Unknown]
  - Hepatic enzyme increased [Recovered/Resolved]

NARRATIVE: CASE EVENT DATE: 20150529
